FAERS Safety Report 12790799 (Version 1)
Quarter: 2016Q3

REPORT INFORMATION
  Report Type: Report from Study
  Country: US (occurrence: US)
  Receive Date: 20160929
  Receipt Date: 20160929
  Transmission Date: 20161109
  Serious: Yes (Hospitalization, Other)
  Sender: FDA-Public Use
  Company Number: US-ROCHE-1079354

PATIENT
  Age: 65 Year
  Sex: Female
  Weight: 100.4 kg

DRUGS (4)
  1. BEVACIZUMAB [Suspect]
     Active Substance: BEVACIZUMAB
     Indication: PAPILLARY SEROUS ENDOMETRIAL CARCINOMA
     Dosage: LAST DOSE PRIOR TO SAE ON: 08/MAR/2012
     Route: 042
     Dates: start: 20111229
  2. IXABEPILONE [Suspect]
     Active Substance: IXABEPILONE
     Indication: PAPILLARY SEROUS ENDOMETRIAL CARCINOMA
     Dosage: LAST DOSE PRIOR TO SAE ON 08/MAR/2012
     Route: 042
     Dates: start: 20111229
  3. CARBOPLATIN. [Suspect]
     Active Substance: CARBOPLATIN
     Dosage: DOSE REDUCED
     Route: 042
  4. CARBOPLATIN. [Suspect]
     Active Substance: CARBOPLATIN
     Indication: PAPILLARY SEROUS ENDOMETRIAL CARCINOMA
     Dosage: AUC 6, LAST DOSE PRIOR TO SAE ON 08/MAR/2012
     Route: 042
     Dates: start: 20111229

REACTIONS (9)
  - Urinary tract infection [Unknown]
  - Hypokalaemia [Recovered/Resolved]
  - Febrile neutropenia [Unknown]
  - Neutrophil count decreased [Unknown]
  - Anaemia [Recovered/Resolved]
  - White blood cell count decreased [Unknown]
  - Hypokalaemia [Unknown]
  - Fatigue [Recovered/Resolved]
  - Hyperglycaemia [Unknown]

NARRATIVE: CASE EVENT DATE: 20120228
